FAERS Safety Report 4451659-4 (Version None)
Quarter: 2004Q3

REPORT INFORMATION
  Report Type: 
  Country: None (occurrence: None)
  Receive Date: 20040915
  Receipt Date: 20040901
  Transmission Date: 20050211
  Serious: Yes (Death, Other)
  Sender: FDA-Public Use
  Company Number: 2004062849

PATIENT
  Age: 54 Year
  Sex: Male

DRUGS (4)
  1. VORICONAZOLE (VORICONAZOLE) [Suspect]
     Indication: INFECTION PROPHYLAXIS
     Dates: start: 20020101
  2. CYTARABINE [Suspect]
     Indication: ACUTE MYELOID LEUKAEMIA RECURRENT
     Dates: start: 20021001
  3. FLUDARABINE PHOSPHATE [Suspect]
     Indication: ACUTE MYELOID LEUKAEMIA RECURRENT
     Dates: start: 20020101
  4. TRETINOIN [Suspect]
     Indication: ACUTE MYELOID LEUKAEMIA RECURRENT
     Dates: start: 20021001

REACTIONS (13)
  - ALVEOLAR PROTEINOSIS [None]
  - CARDIAC TAMPONADE [None]
  - DRUG INTERACTION [None]
  - DRUG TOXICITY [None]
  - FUNGAL INFECTION [None]
  - LUNG CONSOLIDATION [None]
  - MALAISE [None]
  - NERVOUS SYSTEM DISORDER [None]
  - NEUROPATHY PERIPHERAL [None]
  - PARAINFLUENZAE VIRUS INFECTION [None]
  - PERICARDITIS [None]
  - PLEURAL EFFUSION [None]
  - RESPIRATORY DISORDER [None]
